FAERS Safety Report 8324962-5 (Version None)
Quarter: 2012Q2

REPORT INFORMATION
  Report Type: 
  Country: None (occurrence: None)
  Receive Date: 20120501
  Receipt Date: 20100325
  Transmission Date: 20120825
  Serious: No
  Sender: FDA-Public Use
  Company Number: US-TEVA-2010001130

PATIENT
  Sex: Female

DRUGS (6)
  1. TRAZODONE HCL [Concomitant]
  2. NUVIGIL [Suspect]
     Indication: NARCOLEPSY
     Dosage: 250 MILLIGRAM;
     Dates: start: 20090701, end: 20091101
  3. ULTRAM [Concomitant]
  4. ZANAFLEX [Concomitant]
  5. CELEBREX [Concomitant]
  6. PROZAC [Concomitant]

REACTIONS (3)
  - PAIN IN JAW [None]
  - NECK PAIN [None]
  - HEADACHE [None]
